FAERS Safety Report 9721951 (Version 2)
Quarter: 2014Q1

REPORT INFORMATION
  Report Type: Report from Study
  Country: US (occurrence: US)
  Receive Date: 20131202
  Receipt Date: 20140214
  Transmission Date: 20141002
  Serious: Yes (Death, Hospitalization)
  Sender: FDA-Public Use
  Company Number: US-ROCHE-1307037

PATIENT
  Sex: Female

DRUGS (7)
  1. PEGASYS [Suspect]
     Indication: HEPATITIS C
     Dosage: 180 MCG/0.5 ML  ONCE A WEEK
     Route: 065
  2. COPEGUS [Suspect]
     Indication: HEPATITIS C
     Dosage: 2 IN THE MORNING AND 2 AT NIGHT
     Route: 065
  3. COPEGUS [Suspect]
     Route: 065
  4. PHENERGAN [Concomitant]
     Route: 065
  5. RANITIDIN [Concomitant]
  6. CEPHALEXIN [Concomitant]
  7. HYDROCORTISONE CREAM [Concomitant]

REACTIONS (11)
  - Death [Fatal]
  - Haemorrhage [Unknown]
  - Haematemesis [Unknown]
  - Nausea [Unknown]
  - Haematochezia [Unknown]
  - Furuncle [Unknown]
  - Headache [Unknown]
  - Dizziness [Unknown]
  - Dyspepsia [Unknown]
  - Rash generalised [Unknown]
  - Malaise [Unknown]
